FAERS Safety Report 6240341-9 (Version None)
Quarter: 2009Q2

REPORT INFORMATION
  Report Type: 
  Country: None (occurrence: None)
  Receive Date: 20090623
  Receipt Date: 20080805
  Transmission Date: 20091009
  Serious: No
  Sender: FDA-Public Use
  Company Number: US-ASTRAZENECA-2008UW15872

PATIENT
  Age: 12 Year
  Sex: Female
  Weight: 40.8 kg

DRUGS (1)
  1. PULMICORT FLEXHALER [Suspect]
     Indication: ASTHMA
     Route: 055
     Dates: start: 20070101

REACTIONS (3)
  - COUGH [None]
  - LACRIMATION INCREASED [None]
  - NASAL CONGESTION [None]
